FAERS Safety Report 8271214-8 (Version None)
Quarter: 2012Q2

REPORT INFORMATION
  Report Type: 
  Country: None (occurrence: None)
  Receive Date: 20120410
  Receipt Date: 20120330
  Transmission Date: 20120825
  Serious: Yes (Hospitalization)
  Sender: FDA-Public Use
  Company Number: US-SANOFI-AVENTIS-2012SA022665

PATIENT
  Age: 75 Year
  Sex: Male
  Weight: 77 kg

DRUGS (10)
  1. ASPIRIN [Suspect]
     Indication: ANTICOAGULANT THERAPY
     Route: 048
  2. SIMVASTATIN [Concomitant]
  3. FINASTERIDE [Concomitant]
  4. LEVOTHYROXINE SODIUM [Concomitant]
     Indication: HYPOTHYROIDISM
  5. BLINDED THERAPY [Suspect]
     Indication: ACUTE MYOCARDIAL INFARCTION
     Route: 048
     Dates: start: 20111221
  6. METFORMIN HCL [Concomitant]
  7. TAMSULOSIN HCL [Concomitant]
  8. METOPROLOL TARTRATE AND HYDROCHLOROTHIAZIDE [Concomitant]
     Indication: HYPERTENSION
  9. PLAVIX [Suspect]
     Indication: ANTICOAGULANT THERAPY
     Route: 048
  10. RAMIPRIL [Concomitant]
     Indication: HYPERTENSION

REACTIONS (1)
  - GASTRITIS [None]
